FAERS Safety Report 21736245 (Version 3)
Quarter: 2023Q2

REPORT INFORMATION
  Report Type: Report from Study
  Country: US (occurrence: US)
  Receive Date: 20221215
  Receipt Date: 20230408
  Transmission Date: 20230722
  Serious: No
  Sender: FDA-Public Use
  Company Number: US-ABBVIE-4209672

PATIENT
  Sex: Female

DRUGS (3)
  1. SKYRIZI [Suspect]
     Active Substance: RISANKIZUMAB-RZAA
     Indication: Psoriasis
     Dosage: WEEK 4, EVERY 12 WEEKS THEREAFTER?FIRST ADMIN DATE: 04 NOV 2022
     Route: 058
     Dates: start: 20221104
  2. SKYRIZI [Suspect]
     Active Substance: RISANKIZUMAB-RZAA
     Dosage: FORM STRENGTH: 150 MG?WEEK 0
     Route: 058
     Dates: start: 2022, end: 2022
  3. SKYRIZI [Suspect]
     Active Substance: RISANKIZUMAB-RZAA
     Route: 058

REACTIONS (13)
  - Pain in extremity [Not Recovered/Not Resolved]
  - Erythema [Unknown]
  - Skin laceration [Unknown]
  - Myalgia [Unknown]
  - Bone pain [Recovered/Resolved]
  - Pain [Unknown]
  - Skin discolouration [Unknown]
  - Skin fissures [Unknown]
  - Pruritus [Unknown]
  - Therapeutic product effect incomplete [Unknown]
  - Scab [Not Recovered/Not Resolved]
  - Skin exfoliation [Not Recovered/Not Resolved]
  - Skin ulcer [Unknown]

NARRATIVE: CASE EVENT DATE: 20220101
